FAERS Safety Report 9157257 (Version 2)
Quarter: 2013Q1

REPORT INFORMATION
  Report Type: Spontaneous
  Country: US (occurrence: None)
  Receive Date: 20130211
  Receipt Date: 20130312
  Transmission Date: 20140127
  Serious: Yes (Life-Threatening, Other)
  Sender: FDA-Public Use
  Company Number: 2013P1001583

PATIENT
  Sex: 0

DRUGS (1)
  1. HYDROMORPHONE HCL [Suspect]
     Dosage: 0.25 MG; QH; ED
     Route: 008
     Dates: start: 20130112, end: 20130112

REACTIONS (2)
  - Respiratory depression [None]
  - Incorrect route of drug administration [None]
